FAERS Safety Report 8373967-7 (Version None)
Quarter: 2012Q2

REPORT INFORMATION
  Report Type: 
  Country: None (occurrence: None)
  Receive Date: 20120521
  Receipt Date: 20120514
  Transmission Date: 20120825
  Serious: Yes (Hospitalization)
  Sender: FDA-Public Use
  Company Number: PHHY2012GB041110

PATIENT
  Age: 65 Year
  Sex: Female

DRUGS (5)
  1. WARFARIN SODIUM [Suspect]
  2. ERYTHROMYCIN [Interacting]
     Indication: LOWER RESPIRATORY TRACT INFECTION
  3. OMEPRAZOLE [Concomitant]
  4. BISOPROLOL FUMARATE [Concomitant]
  5. ERYTHROMYCIN [Interacting]
     Indication: ROSACEA
     Dosage: UNK

REACTIONS (13)
  - ABDOMINAL TENDERNESS [None]
  - PERICARDIAL HAEMORRHAGE [None]
  - DRUG INTERACTION [None]
  - PERICARDITIS [None]
  - PYREXIA [None]
  - HYPERHIDROSIS [None]
  - ABDOMINAL PAIN UPPER [None]
  - PALLOR [None]
  - SINUS TACHYCARDIA [None]
  - INTERNATIONAL NORMALISED RATIO INCREASED [None]
  - CARDIAC TAMPONADE [None]
  - ABDOMINAL DISTENSION [None]
  - LETHARGY [None]
